FAERS Safety Report 5328097-5 (Version None)
Quarter: 2007Q2

REPORT INFORMATION
  Report Type: 
  Country: None (occurrence: None)
  Receive Date: 20070514
  Receipt Date: 20070430
  Transmission Date: 20071010
  Serious: Yes (Hospitalization)
  Sender: FDA-Public Use
  Company Number: MEDI-0005760

PATIENT
  Sex: Male

DRUGS (3)
  1. ETHYOL [Suspect]
     Dosage: SUBCUTANEOUS
     Route: 058
  2. RADIATION TREATMENT [Concomitant]
  3. CISPLATIN [Concomitant]

REACTIONS (3)
  - ERYTHEMA [None]
  - NAUSEA [None]
  - PNEUMONIA [None]
